FAERS Safety Report 17868905 (Version 1)
Quarter: 2020Q2

REPORT INFORMATION
  Report Type: Spontaneous
  Country: US (occurrence: US)
  Receive Date: 20200607
  Receipt Date: 20200607
  Transmission Date: 20200714
  Serious: Yes (Other)
  Sender: FDA-Public Use
  Company Number: US-ABBVIE-20K-163-3431715-00

PATIENT
  Sex: Male

DRUGS (1)
  1. IMBRUVICA [Suspect]
     Active Substance: IBRUTINIB
     Indication: PRODUCT USED FOR UNKNOWN INDICATION
     Route: 048

REACTIONS (6)
  - Skin hypertrophy [Unknown]
  - Rash erythematous [Recovered/Resolved]
  - Decreased appetite [Recovering/Resolving]
  - Skin discolouration [Unknown]
  - Skin exfoliation [Unknown]
  - Lymphadenopathy [Not Recovered/Not Resolved]
